FAERS Safety Report 10594552 (Version 2)
Quarter: 2014Q4

REPORT INFORMATION
  Report Type: Spontaneous
  Country: IT (occurrence: IT)
  Receive Date: 20141120
  Receipt Date: 20141120
  Transmission Date: 20150529
  Serious: Yes (Hospitalization)
  Sender: FDA-Public Use
  Company Number: IT-ROCHE-1456975

PATIENT

DRUGS (1)
  1. ROCEFIN [Suspect]
     Active Substance: CEFTRIAXONE SODIUM
     Indication: RESPIRATORY TRACT INFECTION
     Route: 030

REACTIONS (3)
  - Hypersensitivity [Unknown]
  - Bronchostenosis [Unknown]
  - Hypertension [Unknown]
